FAERS Safety Report 4299339-2 (Version None)
Quarter: 2004Q1

REPORT INFORMATION
  Report Type: 
  Country: None (occurrence: None)
  Receive Date: 20040217
  Receipt Date: 20040203
  Transmission Date: 20041129
  Serious: Yes (Hospitalization)
  Sender: FDA-Public Use
  Company Number: US-JNJFOC-20040200798

PATIENT
  Age: 33 Year
  Sex: Female
  Weight: 56.246 kg

DRUGS (8)
  1. INFLIXIMAB (INFLIXIMAB, RECOMBINANT) LYOPHILIZED POWDER [Suspect]
     Indication: CROHN'S DISEASE
     Dosage: 5 MG/KG, INTRAVENOUS
     Route: 042
     Dates: start: 20030109
  2. INFLIXIMAB (INFLIXIMAB, RECOMBINANT) LYOPHILIZED POWDER [Suspect]
     Indication: CROHN'S DISEASE
     Dosage: 5 MG/KG, INTRAVENOUS
     Route: 042
     Dates: start: 20030506
  3. INFLIXIMAB (INFLIXIMAB, RECOMBINANT) LYOPHILIZED POWDER [Suspect]
     Indication: CROHN'S DISEASE
     Dosage: 5 MG/KG, INTRAVENOUS
     Route: 042
     Dates: start: 20030702
  4. MERCAPTOPURINE [Concomitant]
  5. ANTIBIOTICS (ANTIBIOTICS) [Concomitant]
  6. BUDESONIDE (BUDESONIDE) [Concomitant]
  7. MESALAMINE (MESALAZINE) [Concomitant]
  8. OTHER CROHN'S THERAPY (ALL OTHER THERAPEUTIC PRODUCTS) [Concomitant]

REACTIONS (5)
  - ANAL FISTULA [None]
  - CONDITION AGGRAVATED [None]
  - CROHN'S DISEASE [None]
  - DISEASE RECURRENCE [None]
  - STENT PLACEMENT [None]
